FAERS Safety Report 11411238 (Version 1)
Quarter: 2015Q3

REPORT INFORMATION
  Report Type: Spontaneous
  Country: US (occurrence: US)
  Receive Date: 20150821
  Receipt Date: 20150821
  Transmission Date: 20151125
  Serious: No
  Sender: FDA-Public Use
  Company Number: US-ELI_LILLY_AND_COMPANY-US201005004799

PATIENT
  Sex: Male

DRUGS (4)
  1. LANTUS [Concomitant]
     Active Substance: INSULIN GLARGINE
  2. HUMULIN N [Suspect]
     Active Substance: INSULIN HUMAN
     Indication: DIABETES MELLITUS
     Dosage: UNK, 3/D
  3. HUMULIN N [Suspect]
     Active Substance: INSULIN HUMAN
     Dosage: UNK, 3/D
  4. NOVOLIN [Concomitant]
     Active Substance: INSULIN HUMAN

REACTIONS (6)
  - Incorrect dose administered [Unknown]
  - Eye disorder [Unknown]
  - Injection site pain [Unknown]
  - Blood glucose decreased [Unknown]
  - Tremor [Unknown]
  - Sleep disorder [Unknown]
